FAERS Safety Report 9989978 (Version 1)
Quarter: 2014Q1

REPORT INFORMATION
  Report Type: Spontaneous
  Country: US (occurrence: None)
  Receive Date: 20140123
  Receipt Date: 20140123
  Transmission Date: 20141002
  Serious: Yes (Hospitalization)
  Sender: FDA-Public Use
  Company Number: UTC-036288

PATIENT
  Age: 51 Year
  Sex: Male
  Weight: 95.25 kg

DRUGS (13)
  1. REMODULIN [Suspect]
     Indication: PULMONARY ARTERIAL HYPERTENSION
     Dosage: 69.12 UG/KG (0.048 UG/KG, 1 IN 1 MIN),INTRAVENOUS DRIP
     Route: 041
     Dates: start: 20110827
  2. ADCIRCA (TADALAFIL)(UNKNOWN) [Concomitant]
  3. LETAIRIS (AMBRISENTAN)(UNKNOWN) [Concomitant]
  4. PREDNISONE (UNKNOWN) [Concomitant]
  5. LASIX (FUROSEMIDE)(UNKNOWN)(FUROSEMIDE) [Concomitant]
  6. POTASSIUM CHLORIDE (UNKNOWN) [Concomitant]
  7. CAPTOPRIL (UNKNOWN) [Concomitant]
  8. HYDROXYCHLOROQUINE (UNKNOWN) [Concomitant]
  9. HYDROXYZINE (TABLET) [Concomitant]
  10. LOPERAMIDE (UNKNOWN) [Concomitant]
  11. METRONIDAZOLE (UNKNOWN) [Concomitant]
  12. FLUCONAZOLE (UNKNOWN) [Concomitant]
  13. OXYGEN (UNKNOWN) [Concomitant]

REACTIONS (1)
  - Device related infection [None]
